FAERS Safety Report 4372433-3 (Version None)
Quarter: 2004Q2

REPORT INFORMATION
  Report Type: 
  Country: None (occurrence: None)
  Receive Date: 20040526
  Receipt Date: 20040513
  Transmission Date: 20050107
  Serious: Yes (Hospitalization)
  Sender: FDA-Public Use
  Company Number: JP-JNJFOC-20040300517

PATIENT
  Age: 48 Year
  Sex: Female
  Weight: 46 kg

DRUGS (8)
  1. REMICADE [Suspect]
     Indication: RHEUMATOID ARTHRITIS
     Dosage: 3 MG/KG, 1 IN 1AS NCESSARY, INTRAVENOUS DRIP
     Route: 041
     Dates: start: 20031112, end: 20031112
  2. REMICADE [Suspect]
     Indication: RHEUMATOID ARTHRITIS
     Dosage: 3 MG/KG, 1 IN 1AS NCESSARY, INTRAVENOUS DRIP
     Route: 041
     Dates: start: 20031126, end: 20031126
  3. REMICADE [Suspect]
     Indication: RHEUMATOID ARTHRITIS
     Dosage: 3 MG/KG, 1 IN 1AS NCESSARY, INTRAVENOUS DRIP
     Route: 041
     Dates: start: 20031224, end: 20031224
  4. REMICADE [Suspect]
     Indication: RHEUMATOID ARTHRITIS
     Dosage: 3 MG/KG, 1 IN 1AS NCESSARY, INTRAVENOUS DRIP
     Route: 041
     Dates: start: 20040225, end: 20040225
  5. RHEUMATREX [Concomitant]
  6. METHOTREXATE [Concomitant]
  7. LOXONIN (LOXOPROFEN SODIUM) TABLETS [Concomitant]
  8. SOLON (SOFALCONE) CAPSULES [Concomitant]

REACTIONS (7)
  - BLOOD PRESSURE DECREASED [None]
  - BODY TEMPERATURE DECREASED [None]
  - CHILLS [None]
  - COLD SWEAT [None]
  - FATIGUE [None]
  - PYREXIA [None]
  - RASH [None]
